FAERS Safety Report 7511739-3 (Version None)
Quarter: 2011Q2

REPORT INFORMATION
  Report Type: 
  Country: None (occurrence: None)
  Receive Date: 20110531
  Receipt Date: 20110517
  Transmission Date: 20111010
  Serious: Yes (Other)
  Sender: FDA-Public Use
  Company Number: FR-ELI_LILLY_AND_COMPANY-FR201105005939

PATIENT
  Age: 64 Year
  Sex: Female

DRUGS (1)
  1. RALOXIFENE [Suspect]
     Dosage: UNK
     Route: 048
     Dates: start: 20021202

REACTIONS (1)
  - BREAST CANCER [None]
